FAERS Safety Report 8077605-2 (Version None)
Quarter: 2012Q1

REPORT INFORMATION
  Report Type: 
  Country: None (occurrence: None)
  Receive Date: 20120127
  Receipt Date: 20120125
  Transmission Date: 20120608
  Serious: Yes (Hospitalization)
  Sender: FDA-Public Use
  Company Number: US-VERTEX PHARMACEUTICALS INC.-AE-2012-001301

PATIENT
  Sex: Female

DRUGS (3)
  1. RIBAVIRIN [Concomitant]
     Indication: HEPATITIS C
     Dates: start: 20111110, end: 20111208
  2. INCIVEK [Suspect]
     Indication: HEPATITIS C
     Dates: start: 20111110, end: 20111208
  3. PEG-INTRON [Concomitant]
     Indication: HEPATITIS C
     Dates: start: 20111110, end: 20111208

REACTIONS (4)
  - PRURITUS [None]
  - BLOOD POTASSIUM DECREASED [None]
  - DEPRESSION [None]
  - RASH [None]
